FAERS Safety Report 23906588 (Version 1)
Quarter: 2024Q2

REPORT INFORMATION
  Report Type: Spontaneous
  Country: US (occurrence: US)
  Receive Date: 20240528
  Receipt Date: 20240528
  Transmission Date: 20240716
  Serious: No
  Sender: FDA-Public Use
  Company Number: US-AUROBINDO-AUR-APL-2023-054919

PATIENT
  Age: 88 Year
  Sex: Male
  Weight: 100 kg

DRUGS (1)
  1. LORATADINE [Suspect]
     Active Substance: LORATADINE
     Indication: Rhinorrhoea
     Dosage: UNK UNK, ONCE A DAY
     Route: 065

REACTIONS (1)
  - Drug ineffective [Unknown]
